FAERS Safety Report 4570297-6 (Version None)
Quarter: 2005Q1

REPORT INFORMATION
  Report Type: 
  Country: None (occurrence: None)
  Receive Date: 20050202
  Receipt Date: 20050117
  Transmission Date: 20050727
  Serious: Yes (Hospitalization)
  Sender: FDA-Public Use
  Company Number: EWC041141306

PATIENT
  Age: 75 Year
  Sex: Female

DRUGS (6)
  1. FORTEO [Suspect]
     Indication: OSTEOPOROSIS
     Dosage: 20 UG/1 DAY
     Dates: start: 20040919, end: 20050102
  2. NATECAL          (CALCIUM CARBONATE) [Concomitant]
  3. LIPLAT          (PRAVASTATIN SODIUM) [Concomitant]
  4. DIERTINA                (DIHYDROERGOCRISTINE MESILATE) [Concomitant]
  5. LORAZEPAM [Concomitant]
  6. MOVALIS                (MELOXICAM) [Concomitant]

REACTIONS (13)
  - AMNESIA [None]
  - ASTHENIA [None]
  - COUGH [None]
  - DIZZINESS [None]
  - DYSGEUSIA [None]
  - ESCHERICHIA URINARY TRACT INFECTION [None]
  - FALL [None]
  - FRACTURE [None]
  - LOSS OF CONSCIOUSNESS [None]
  - NAUSEA [None]
  - PALPITATIONS [None]
  - URINARY TRACT INFECTION [None]
  - WHITE BLOOD CELL COUNT INCREASED [None]
